FAERS Safety Report 6733012-3 (Version None)
Quarter: 2010Q2

REPORT INFORMATION
  Report Type: 
  Country: None (occurrence: None)
  Receive Date: 20100514
  Receipt Date: 20100503
  Transmission Date: 20101027
  Serious: Yes (Death)
  Sender: FDA-Public Use
  Company Number: 1000013553

PATIENT
  Age: 24 Year
  Sex: Female

DRUGS (2)
  1. LEVOTHYROID (LEVOTHYROXINE SODIUM) [Suspect]
     Dates: start: 20010601
  2. ORAL GLUCOCORTICOID [Concomitant]

REACTIONS (10)
  - CARDIAC ARREST [None]
  - CEREBRAL ARTERY THROMBOSIS [None]
  - CEREBRAL INFARCTION [None]
  - DIPLOPIA [None]
  - EXOPHTHALMOS [None]
  - HALLUCINATION, VISUAL [None]
  - HEADACHE [None]
  - LOSS OF CONSCIOUSNESS [None]
  - TEARFULNESS [None]
  - VISUAL ACUITY REDUCED [None]
